FAERS Safety Report 13998603 (Version 1)
Quarter: 2017Q3

REPORT INFORMATION
  Report Type: Spontaneous
  Country: US (occurrence: US)
  Receive Date: 20170922
  Receipt Date: 20170922
  Transmission Date: 20171128
  Serious: Yes (Disabling, Other)
  Sender: FDA-Public Use
  Company Number: US-REGENERON PHARMACEUTICALS, INC.-2017-22334

PATIENT

DRUGS (1)
  1. EYLEA [Suspect]
     Active Substance: AFLIBERCEPT
     Indication: NEOVASCULAR AGE-RELATED MACULAR DEGENERATION
     Dosage: 2 MG OD, 2 INJECTIONS TOTAL
     Route: 031

REACTIONS (4)
  - Blindness unilateral [Unknown]
  - Retinal injury [Unknown]
  - Endophthalmitis [Unknown]
  - Surgery [Unknown]
